FAERS Safety Report 7747361-3 (Version None)
Quarter: 2011Q3

REPORT INFORMATION
  Report Type: 
  Country: None (occurrence: None)
  Receive Date: 20110913
  Receipt Date: 20110831
  Transmission Date: 20111222
  Serious: Yes (Other)
  Sender: FDA-Public Use
  Company Number: US-GLAXOSMITHKLINE-A0897030A

PATIENT
  Age: 67 Year
  Sex: Male
  Weight: 95 kg

DRUGS (10)
  1. AVANDIA [Suspect]
     Indication: DIABETES MELLITUS
     Dosage: 8MG PER DAY
     Route: 048
     Dates: start: 20010822, end: 20020417
  2. GLYBURIDE [Concomitant]
  3. PRILOSEC [Concomitant]
  4. VASOTEC [Concomitant]
  5. DILTIAZEM [Concomitant]
  6. LIPITOR [Concomitant]
  7. CATAPRES [Concomitant]
  8. ACTOS [Concomitant]
  9. REMERON [Concomitant]
  10. AMBIEN [Concomitant]

REACTIONS (3)
  - CARDIAC FAILURE CONGESTIVE [None]
  - MYOCARDIAL INFARCTION [None]
  - ARTERIOSCLEROSIS [None]
